FAERS Safety Report 6660775-8 (Version None)
Quarter: 2010Q1

REPORT INFORMATION
  Report Type: 
  Country: None (occurrence: None)
  Receive Date: 20100326
  Receipt Date: 20100316
  Transmission Date: 20100710
  Serious: Yes (Other)
  Sender: FDA-Public Use
  Company Number: 1000012679

PATIENT
  Sex: Female
  Weight: 54 kg

DRUGS (4)
  1. CITALOPRAM HYDROBROMIDE [Suspect]
     Indication: DEPRESSION
     Dosage: 5 MG (5 MG,1 IN 1 D),ORAL
     Route: 048
  2. CITALOPRAM HYDROBROMIDE [Suspect]
     Indication: DEPRESSION
     Dosage: 10 MG (10 MG,1 IN 1 D),ORAL ; 10 MG (10 MG,1 IN 1 D),ORAL
     Route: 048
     Dates: start: 20050408
  3. PRAZEPAM [Concomitant]
  4. ZOPICLONE [Concomitant]

REACTIONS (6)
  - DEREALISATION [None]
  - DRUG WITHDRAWAL SYNDROME [None]
  - DYSARTHRIA [None]
  - HYPOTONIA [None]
  - MENTAL IMPAIRMENT [None]
  - MYALGIA [None]
